FAERS Safety Report 23450930 (Version 2)
Quarter: 2024Q1

REPORT INFORMATION
  Report Type: Spontaneous
  Country: US (occurrence: US)
  Receive Date: 20240129
  Receipt Date: 20240207
  Transmission Date: 20240409
  Serious: Yes (Hospitalization)
  Sender: FDA-Public Use
  Company Number: US-PFIZER INC-PV202300054918

PATIENT
  Age: 69 Year
  Sex: Male

DRUGS (1)
  1. INLYTA [Suspect]
     Active Substance: AXITINIB
     Indication: Renal cancer
     Dosage: 2 MG, BID (TWICE A DAY)
     Route: 048

REACTIONS (5)
  - Gout [Unknown]
  - Pneumonia [Unknown]
  - Delirium [Unknown]
  - Hypercalcaemia [Unknown]
  - Hyperparathyroidism [Unknown]

NARRATIVE: CASE EVENT DATE: 20190101
